FAERS Safety Report 11868755 (Version 1)
Quarter: 2015Q4

REPORT INFORMATION
  Report Type: Report from Study
  Country: US (occurrence: US)
  Receive Date: 20151225
  Receipt Date: 20151225
  Transmission Date: 20160305
  Serious: Yes (Other)
  Sender: FDA-Public Use
  Company Number: US-BRISTOL-MYERS SQUIBB COMPANY-10970085

PATIENT
  Age: 38 Year
  Sex: Female

DRUGS (3)
  1. ZIAGEN [Suspect]
     Active Substance: ABACAVIR SULFATE
     Indication: ANTIRETROVIRAL THERAPY
     Dosage: -TAKEN AT CONCEPTION
     Route: 048
  2. STAVUDINE. [Suspect]
     Active Substance: STAVUDINE
     Indication: ANTIRETROVIRAL THERAPY
     Dosage: 80 MG, QD
     Route: 048
  3. SUSTIVA [Suspect]
     Active Substance: EFAVIRENZ
     Indication: ANTIRETROVIRAL THERAPY
     Dosage: 600 MG, QD
     Route: 048

REACTIONS (2)
  - Pregnancy [Recovered/Resolved]
  - Abortion induced [Unknown]

NARRATIVE: CASE EVENT DATE: 20010803
